FAERS Safety Report 11696893 (Version 2)
Quarter: 2015Q4

REPORT INFORMATION
  Report Type: Spontaneous
  Country: FR (occurrence: FR)
  Receive Date: 20151104
  Receipt Date: 20151110
  Transmission Date: 20160304
  Serious: Yes (Hospitalization)
  Sender: FDA-Public Use
  Company Number: FR-PFIZER INC-2015370968

PATIENT
  Age: 69 Year
  Sex: Male

DRUGS (13)
  1. RAMIPRIL-ZENTIVA [Suspect]
     Active Substance: RAMIPRIL
     Indication: GENERALISED OEDEMA
     Dosage: 2.5 MG, 1X/DAY
     Route: 048
     Dates: start: 20150428
  2. RAMIPRIL-ZENTIVA [Suspect]
     Active Substance: RAMIPRIL
     Dosage: 2.5 MG, 2X/DAY
     Route: 048
     Dates: end: 20150609
  3. INSPRA [Suspect]
     Active Substance: EPLERENONE
     Indication: GENERALISED OEDEMA
     Dosage: 25 MG, 1X/DAY
     Route: 048
     Dates: start: 20150505, end: 20150609
  4. NEORECORMON [Concomitant]
     Active Substance: ERYTHROPOIETIN
     Dosage: 1 DF, WEEKLY
     Dates: start: 201501
  5. SPECIAFOLDINE [Concomitant]
     Active Substance: FOLIC ACID
     Dosage: 5 MG, 2X/DAY
     Dates: start: 201501
  6. GANFORT [Concomitant]
     Active Substance: BIMATOPROST\TIMOLOL
     Dosage: UNK
     Route: 047
  7. FUROSEMIDE ZENTIVA [Suspect]
     Active Substance: FUROSEMIDE
     Indication: GENERALISED OEDEMA
     Dosage: 120 MG, UNK
     Route: 042
     Dates: start: 20150428
  8. AZOPT [Concomitant]
     Active Substance: BRINZOLAMIDE
     Dosage: UNK
     Route: 047
  9. BACTRIM DS [Concomitant]
     Active Substance: SULFAMETHOXAZOLE\TRIMETHOPRIM
     Dosage: THRICE WEEKLY
     Dates: start: 201501
  10. ITRACONAZOLE. [Concomitant]
     Active Substance: ITRACONAZOLE
     Dosage: 200 MG, 2X/DAY
     Dates: start: 201501
  11. GRANOCYTE [Concomitant]
     Active Substance: LENOGRASTIM
     Dosage: THRICE WEEKLY
     Dates: start: 201501
  12. FUROSEMIDE ZENTIVA [Suspect]
     Active Substance: FUROSEMIDE
     Dosage: 80 MG, DAILY
     Route: 048
     Dates: end: 20150609
  13. ZELITREX [Concomitant]
     Active Substance: VALACYCLOVIR HYDROCHLORIDE
     Dosage: 500 MG, 1X/DAY
     Dates: start: 201501

REACTIONS (1)
  - Acute prerenal failure [Recovered/Resolved]

NARRATIVE: CASE EVENT DATE: 20150609
